FAERS Safety Report 24302266 (Version 1)
Quarter: 2024Q3

REPORT INFORMATION
  Report Type: Spontaneous
  Country: IE (occurrence: IE)
  Receive Date: 20240910
  Receipt Date: 20240910
  Transmission Date: 20241016
  Serious: Yes (Other)
  Sender: PFIZER
  Company Number: IE-TAKEDA-47690

PATIENT
  Age: 31 Year
  Sex: Male

DRUGS (4)
  1. PANTOPRAZOLE [Suspect]
     Active Substance: PANTOPRAZOLE
     Indication: Bacterial infection
     Dosage: 80 MILLIGRAM, QD
     Route: 048
     Dates: start: 20031212, end: 20040105
  2. PANTOPRAZOLE [Suspect]
     Active Substance: PANTOPRAZOLE
     Dosage: 80 MILLIGRAM, QD
     Route: 048
     Dates: start: 20031229, end: 20040105
  3. CLARITHROMYCIN [Suspect]
     Active Substance: CLARITHROMYCIN
     Indication: Helicobacter infection
     Dosage: 1000 MILLIGRAM, QD
     Route: 048
     Dates: start: 20031229, end: 20040105
  4. AMOXICILLIN [Suspect]
     Active Substance: AMOXICILLIN
     Indication: Bacterial infection
     Dosage: 2 GRAM, QD
     Route: 048
     Dates: start: 20031229, end: 20040105

REACTIONS (3)
  - Depression [Recovered/Resolved]
  - Suicidal ideation [Recovered/Resolved]
  - Suicide attempt [Recovered/Resolved]
